FAERS Safety Report 19593609 (Version 1)
Quarter: 2021Q3

REPORT INFORMATION
  Report Type: Spontaneous
  Country: EG (occurrence: EG)
  Receive Date: 20210722
  Receipt Date: 20210722
  Transmission Date: 20211014
  Serious: Yes (Other)
  Sender: FDA-Public Use
  Company Number: EG-ASTRAZENECA-2021A623200

PATIENT
  Age: 27 Year
  Sex: Female

DRUGS (5)
  1. SYMBICORT [Suspect]
     Active Substance: BUDESONIDE\FORMOTEROL FUMARATE DIHYDRATE
     Indication: ASTHMA
     Dosage: TWICE DAILY IN THE MORNING AND NIGHT300UG/INHAL TWO TIMES A DAY
     Route: 055
     Dates: start: 202102
  2. INHALEX [Concomitant]
     Indication: ASTHMA
     Dosage: 0.018 MG INHALATION ONCE DAILY AT THE MID?DAY
  3. DELAREX [Concomitant]
     Indication: ASTHMA
     Dosage: 5.0MG UNKNOWN
     Route: 048
  4. SYMBICORT [Suspect]
     Active Substance: BUDESONIDE\FORMOTEROL FUMARATE DIHYDRATE
     Indication: ASTHMA
     Dosage: IN THE MORNING AND NIGHT.160UG/INHAL TWO TIMES A DAY
     Route: 055
     Dates: start: 202102
  5. LELIPEL [Concomitant]
     Indication: ASTHMA
     Route: 048

REACTIONS (2)
  - Muscle twitching [Not Recovered/Not Resolved]
  - Dizziness [Not Recovered/Not Resolved]

NARRATIVE: CASE EVENT DATE: 202102
